FAERS Safety Report 14934722 (Version 2)
Quarter: 2018Q2

REPORT INFORMATION
  Report Type: Report from Study
  Country: ES (occurrence: ES)
  Receive Date: 20180524
  Receipt Date: 20180613
  Transmission Date: 20180711
  Serious: Yes (Death, Hospitalization)
  Sender: FDA-Public Use
  Company Number: PHHO2017ES009287

PATIENT
  Age: 77 Year
  Sex: Female
  Weight: 95 kg

DRUGS (5)
  1. HIDROSALURETIL [Concomitant]
     Active Substance: HYDROCHLOROTHIAZIDE
     Indication: HYPERTENSION
     Dosage: 50 MG, QD
     Route: 048
     Dates: start: 20101027
  2. GEMZAR [Suspect]
     Active Substance: GEMCITABINE HYDROCHLORIDE
     Indication: BREAST CANCER
     Dosage: 890 MG, QW3
     Route: 042
     Dates: start: 20170214, end: 20170613
  3. CARBOPLATIN. [Suspect]
     Active Substance: CARBOPLATIN
     Indication: BREAST CANCER
     Dosage: 62 MG, QW3
     Route: 042
     Dates: start: 20170214, end: 20170517
  4. JANUMET [Concomitant]
     Active Substance: METFORMIN HYDROCHLORIDE\SITAGLIPTIN PHOSPHATE
     Indication: HYPERGLYCAEMIA
     Dosage: 50/100 MG, QD
     Route: 048
     Dates: start: 20101025
  5. MCS110 [Suspect]
     Active Substance: LACNOTUZUMAB
     Indication: BREAST CANCER
     Dosage: 225 MG, QW3
     Route: 042
     Dates: start: 20170214, end: 20170613

REACTIONS (1)
  - Renal failure [Fatal]

NARRATIVE: CASE EVENT DATE: 20170613
